FAERS Safety Report 8370354-2 (Version None)
Quarter: 2012Q2

REPORT INFORMATION
  Report Type: 
  Country: None (occurrence: None)
  Receive Date: 20120518
  Receipt Date: 20110902
  Transmission Date: 20120825
  Serious: No
  Sender: FDA-Public Use
  Company Number: US-ASTRAZENECA-2011SE61062

PATIENT
  Sex: Male

DRUGS (1)
  1. PRILOSEC OTC [Suspect]
     Indication: OESOPHAGEAL SPASM
     Route: 048
     Dates: start: 20110826, end: 20110828

REACTIONS (5)
  - DYSURIA [None]
  - OFF LABEL USE [None]
  - PRURITUS [None]
  - GENITAL DISCOMFORT [None]
  - PRURITUS GENITAL [None]
